FAERS Safety Report 5353453-9 (Version None)
Quarter: 2007Q2

REPORT INFORMATION
  Report Type: 
  Country: None (occurrence: None)
  Receive Date: 20070612
  Receipt Date: 20070603
  Transmission Date: 20071010
  Serious: Yes (Hospitalization)
  Sender: FDA-Public Use
  Company Number: PHFR2007GB01815

PATIENT
  Sex: Male

DRUGS (1)
  1. CLOZARIL [Suspect]
     Dosage: 600MG
     Dates: start: 20070602

REACTIONS (4)
  - AGGRESSION [None]
  - AGITATION [None]
  - MEDICATION ERROR [None]
  - RESTLESSNESS [None]
